FAERS Safety Report 5349643-1 (Version None)
Quarter: 2007Q2

REPORT INFORMATION
  Report Type: 
  Country: None (occurrence: None)
  Receive Date: 20070607
  Receipt Date: 20070531
  Transmission Date: 20071010
  Serious: Yes (Death)
  Sender: FDA-Public Use
  Company Number: FI-BRISTOL-MYERS SQUIBB COMPANY-13805734

PATIENT
  Age: 63 Year
  Sex: Male

DRUGS (11)
  1. SENDOXAN [Suspect]
     Indication: NON-HODGKIN'S LYMPHOMA
     Dates: start: 20051201, end: 20060401
  2. RITUXIMAB [Suspect]
     Indication: NON-HODGKIN'S LYMPHOMA
     Dates: start: 20051201, end: 20060401
  3. PREDNISONE TAB [Suspect]
     Indication: NON-HODGKIN'S LYMPHOMA
     Dates: start: 20051201, end: 20060401
  4. ADRIAMYCIN PFS [Suspect]
     Indication: NON-HODGKIN'S LYMPHOMA
     Dates: start: 20051201, end: 20060401
  5. ONCOVIN [Suspect]
     Indication: NON-HODGKIN'S LYMPHOMA
     Dates: start: 20051201, end: 20060401
  6. CYTARABINE [Suspect]
     Indication: NON-HODGKIN'S LYMPHOMA
     Dates: start: 20051201, end: 20060401
  7. ORAMET [Concomitant]
  8. EFFEXOR [Concomitant]
  9. DEPRAKINE DEPOT [Concomitant]
  10. ATACAND HCT [Concomitant]
  11. ACETYLSALICYLIC ACID SRT [Concomitant]

REACTIONS (2)
  - JC VIRUS INFECTION [None]
  - PROGRESSIVE MULTIFOCAL LEUKOENCEPHALOPATHY [None]
